FAERS Safety Report 21168718 (Version 1)
Quarter: 2022Q3

REPORT INFORMATION
  Report Type: Spontaneous
  Country: US (occurrence: US)
  Receive Date: 20220803
  Receipt Date: 20220803
  Transmission Date: 20221026
  Serious: Yes (Other)
  Sender: FDA-Public Use
  Company Number: US-ADMA BIOLOGICS INC.-US-2022ADM000050

PATIENT

DRUGS (3)
  1. HUMAN IMMUNOGLOBULIN G [Suspect]
     Active Substance: HUMAN IMMUNOGLOBULIN G
     Indication: Parvovirus B19 infection
     Dosage: 0.5 MG/KG FOR FIVE DAYS
     Route: 042
  2. HUMAN IMMUNOGLOBULIN G [Suspect]
     Active Substance: HUMAN IMMUNOGLOBULIN G
     Dosage: FOUR AND ONE-HALF DOSES
     Route: 042
  3. DEXAMETHASONE [Concomitant]
     Active Substance: DEXAMETHASONE
     Indication: Product used for unknown indication
     Dosage: 10 MG/M2 FOR 5 DAYS

REACTIONS (11)
  - Hemiplegia [Recovered/Resolved]
  - Rectal haemorrhage [Unknown]
  - Thrombocytopenia [Unknown]
  - Haemolytic anaemia [Unknown]
  - Gastrointestinal injury [Unknown]
  - Vision blurred [Recovered/Resolved]
  - Wheezing [Recovered/Resolved]
  - Pyrexia [Unknown]
  - Hypotension [Unknown]
  - Myalgia [Unknown]
  - Headache [Unknown]
